FAERS Safety Report 9286197 (Version 1)
Quarter: 2013Q2

REPORT INFORMATION
  Report Type: Spontaneous
  Country: US (occurrence: US)
  Receive Date: 20130513
  Receipt Date: 20130513
  Transmission Date: 20140414
  Serious: Yes (Hospitalization)
  Sender: FDA-Public Use
  Company Number: US-ASTRAZENECA-2013SE31464

PATIENT
  Age: 30 Year
  Sex: Male

DRUGS (3)
  1. SEROQUEL XR [Suspect]
     Indication: SCHIZOPHRENIA
     Route: 048
  2. INVEGA SUSTENNA [Concomitant]
  3. XANAX [Concomitant]

REACTIONS (2)
  - Overdose [Unknown]
  - Neuroleptic malignant syndrome [Unknown]
